FAERS Safety Report 25923033 (Version 1)
Quarter: 2025Q4

REPORT INFORMATION
  Report Type: Report from Study
  Country: US (occurrence: US)
  Receive Date: 20251015
  Receipt Date: 20251015
  Transmission Date: 20260118
  Serious: Yes (Other)
  Sender: GILEAD
  Company Number: US-GILEAD-2025-0731973

PATIENT
  Sex: Female

DRUGS (1)
  1. AZTREONAM LYSINE [Suspect]
     Active Substance: AZTREONAM LYSINE
     Indication: Cystic fibrosis
     Dosage: INHALE 75 MG THREE TIMES DAILY, CYCLE 28 DAYS ON AND 28 DAYS OFF
     Route: 055

REACTIONS (3)
  - Cystic fibrosis [Unknown]
  - Infection [Unknown]
  - Product use issue [Unknown]
